FAERS Safety Report 13085463 (Version 1)
Quarter: 2017Q1

REPORT INFORMATION
  Report Type: Spontaneous
  Country: US (occurrence: US)
  Receive Date: 20170104
  Receipt Date: 20170104
  Transmission Date: 20170428
  Serious: No
  Sender: FDA-Public Use
  Company Number: US-PFIZER INC-2016236995

PATIENT
  Age: 55 Year
  Sex: Female
  Weight: 90.7 kg

DRUGS (35)
  1. PROTONIX [Concomitant]
     Active Substance: PANTOPRAZOLE SODIUM
     Indication: GASTRIC DISORDER
     Dosage: 40 MG, 1X/DAY
     Dates: start: 2012
  2. SYMBICORT [Concomitant]
     Active Substance: BUDESONIDE\FORMOTEROL FUMARATE DIHYDRATE
     Indication: CHRONIC OBSTRUCTIVE PULMONARY DISEASE
  3. TRAMADOL HCL [Concomitant]
     Active Substance: TRAMADOL HYDROCHLORIDE
     Indication: PAIN
     Dosage: 50 MG, AS NEEDED(1 TABS BY MOUTH EVERY 6-8 HRS AS NEEDED )
     Route: 048
  4. NICOTINE POLACRILEX [Concomitant]
     Active Substance: NICOTINE
     Dosage: UNK UNK, AS NEEDED (4 MG M/T GUM, CHEW ONE 3-4 TIMES DAILY AS NEEDED.)
  5. ALBUTEROL SULFATE. [Concomitant]
     Active Substance: ALBUTEROL SULFATE
     Indication: DYSPNOEA
  6. NICODERM CQ [Concomitant]
     Active Substance: NICOTINE
     Dosage: UNK, DAILY(21 MG/24HR TRANS PT24  APPLY DAILY AS DIRECTED)
  7. IRON [Concomitant]
     Active Substance: IRON
     Dosage: UNK UNK, DAILY
  8. SYMBICORT [Concomitant]
     Active Substance: BUDESONIDE\FORMOTEROL FUMARATE DIHYDRATE
     Indication: EMPHYSEMA
     Dosage: UNK UNK, 2X/DAY (160/4.5 TWO INHALATIONS TWICE A DAY)
     Route: 045
  9. FLONASE [Concomitant]
     Active Substance: FLUTICASONE PROPIONATE
     Indication: SINUS DISORDER
     Dosage: UNK UNK, 1X/DAY(50 MCG/ACT, TWO SPRAYS IN EACH NOSTRIL ONCE DAILY)
     Route: 045
     Dates: start: 2014
  10. MIRALAX [Concomitant]
     Active Substance: POLYETHYLENE GLYCOL 3350
     Dosage: 1 DF, DAILY(1 PACK DAILY AS DIRECTED)
     Route: 048
  11. ALBUTEROL SULFATE. [Concomitant]
     Active Substance: ALBUTEROL SULFATE
     Indication: WHEEZING
     Dosage: UNK UNK, AS NEEDED(2.5 MG/3ML1 VIAL IN NEBULIZER EVERY 2 HOURS AS NEEDED )
  12. FOLIC ACID. [Concomitant]
     Active Substance: FOLIC ACID
     Dosage: 1 MG, DAILY
     Route: 048
  13. MAGNESIUM [Concomitant]
     Active Substance: MAGNESIUM
     Dosage: 500 MG, 2X/DAY
     Route: 048
  14. DULERA [Concomitant]
     Active Substance: FORMOTEROL FUMARATE DIHYDRATE\MOMETASONE FUROATE
     Dosage: UNK, 2X/DAY  (200-5 MCG/ACT AERO, 2 INHALATIONS TWICE DAILY)
     Route: 055
  15. VENTOLIN HFA [Concomitant]
     Active Substance: ALBUTEROL SULFATE
     Dosage: UNK UNK, AS NEEDED(108 (90 BASE) MCG/ACT AERS ;2 PUFFS EVERY 4 HRS. AS NEEDED)
  16. VITAMIN D [Concomitant]
     Active Substance: CHOLECALCIFEROL
     Dosage: UNK UNK, DAILY
  17. TRAZODONE HYDROCHLORIDE. [Concomitant]
     Active Substance: TRAZODONE HYDROCHLORIDE
     Dosage: 50 MG, 1X/DAY (1/2 AT BEDTIME)
  18. ROPINIROLE HCL [Concomitant]
     Active Substance: ROPINIROLE HYDROCHLORIDE
     Indication: RESTLESS LEGS SYNDROME
     Dosage: 1 MG, 1X/DAY(1MG ONCE IN THE EVENING)
     Dates: start: 2013
  19. IBUPROFEN. [Concomitant]
     Active Substance: IBUPROFEN
     Indication: PAIN
     Dosage: 800 MG, AS NEEDED(1 BY MOUTH UP TO 3 TIMES DAILY AS NEEDED )
     Route: 048
  20. TRAZODONE [Concomitant]
     Active Substance: TRAZODONE HYDROCHLORIDE
     Indication: SLEEP DISORDER
     Dosage: 150 MG, 1X/DAY
     Dates: start: 2015
  21. PRAVASTATIN. [Concomitant]
     Active Substance: PRAVASTATIN
     Indication: BLOOD CHOLESTEROL ABNORMAL
     Dosage: 80 MG, 1X/DAY
     Dates: start: 2010
  22. ENBREL [Concomitant]
     Active Substance: ETANERCEPT
     Dosage: UNK, WEEKLY (25 MG/0.5ML SOLN)
  23. EFFEXOR [Concomitant]
     Active Substance: VENLAFAXINE HYDROCHLORIDE
     Indication: DEPRESSION
     Dosage: 75 MG, 1X/DAY
     Dates: start: 2012
  24. LYRICA [Suspect]
     Active Substance: PREGABALIN
     Indication: FIBROMYALGIA
     Dosage: 75 MG, 3X/DAY
     Route: 048
     Dates: end: 201610
  25. HUMIRA [Concomitant]
     Active Substance: ADALIMUMAB
     Indication: STENOSIS
     Dosage: 40 MG, UNK(EVERY OTHER WEEK)
     Route: 058
  26. PANTOPRAZOLE SODIUM. [Concomitant]
     Active Substance: PANTOPRAZOLE SODIUM
     Dosage: 40 MG, DAILY
     Route: 048
  27. REQUIP [Concomitant]
     Active Substance: ROPINIROLE HYDROCHLORIDE
     Dosage: 1 MG, 1X/DAY
  28. EFFEXOR [Concomitant]
     Active Substance: VENLAFAXINE HYDROCHLORIDE
     Dosage: 150 MG, 1X/DAY
     Dates: start: 2012
  29. EFFEXOR XR [Concomitant]
     Active Substance: VENLAFAXINE HYDROCHLORIDE
     Dosage: 150 MG, DAILY
     Route: 048
  30. ALBUTEROL W/IPRATROPIUM [Concomitant]
     Active Substance: ALBUTEROL\IPRATROPIUM
     Dosage: UNK, 4X/DAY (IPRATROPIUM-ALBUTEROL 0.5-2.5 (3) MG/3ML INH SOLN)
     Route: 055
  31. CETIRIZINE HCL [Concomitant]
     Active Substance: CETIRIZINE HYDROCHLORIDE
     Dosage: 10 MG, DAILY
     Route: 048
  32. ENBREL [Concomitant]
     Active Substance: ETANERCEPT
     Dosage: 50 MG/ML, WEEKLY
  33. ATIVAN [Concomitant]
     Active Substance: LORAZEPAM
     Dosage: UNK, AS NEEDED (1/2 TO 1 TAB BY MOUTH DAILY AS NEEDED)
     Route: 048
  34. BACLOFEN. [Concomitant]
     Active Substance: BACLOFEN
     Indication: MUSCLE SPASMS
     Dosage: 10 MG, AS NEEDED(1 BY MOUTH EVERY 8 HRS AS NEEDED )
     Route: 048
  35. PRAVASTATIN SODIUM. [Concomitant]
     Active Substance: PRAVASTATIN SODIUM
     Dosage: 80 MG, DAILY

REACTIONS (6)
  - Malaise [Unknown]
  - Asthenia [Not Recovered/Not Resolved]
  - Insomnia [Not Recovered/Not Resolved]
  - Pyrexia [Not Recovered/Not Resolved]
  - Pain [Not Recovered/Not Resolved]
  - Depression [Not Recovered/Not Resolved]

NARRATIVE: CASE EVENT DATE: 201610
